FAERS Safety Report 5444255-3 (Version None)
Quarter: 2007Q3

REPORT INFORMATION
  Report Type: 
  Country: None (occurrence: None)
  Receive Date: 20070904
  Receipt Date: 20070904
  Transmission Date: 20080115
  Serious: No
  Sender: FDA-Public Use
  Company Number: None

PATIENT
  Age: 32 Year
  Sex: Female
  Weight: 68.0396 kg

DRUGS (1)
  1. ESTRADERM [Suspect]
     Indication: ASSISTED FERTILISATION
     Dosage: 0.1MG/DAY 2 PATCHES/ 48 HOURS TRANSDERMAL
     Route: 062
     Dates: start: 20070902, end: 20070903

REACTIONS (2)
  - DEVICE MALFUNCTION [None]
  - PHARMACEUTICAL PRODUCT COMPLAINT [None]
